FAERS Safety Report 25173263 (Version 1)
Quarter: 2025Q2

REPORT INFORMATION
  Report Type: Spontaneous
  Country: US (occurrence: None)
  Receive Date: 20250408
  Receipt Date: 20250408
  Transmission Date: 20250717
  Serious: Yes (Death)
  Sender: FDA-CTU
  Company Number: None

PATIENT
  Age: 14 Year
  Sex: Male
  Weight: 60 kg

DRUGS (5)
  1. VYONDYS 53 [Suspect]
     Active Substance: GOLODIRSEN
     Dosage: OTHER FREQUENCY : WEEKLY;?
     Route: 040
  2. VAMOROLONE [Concomitant]
     Active Substance: VAMOROLONE
     Dates: start: 20240626
  3. ENTRESTO [Concomitant]
     Active Substance: SACUBITRIL\VALSARTAN
  4. CARVEDILOL [Concomitant]
     Active Substance: CARVEDILOL
  5. EPLERENONE [Concomitant]
     Active Substance: EPLERENONE

REACTIONS (1)
  - Death [None]

NARRATIVE: CASE EVENT DATE: 20250305
